FAERS Safety Report 7305849-3 (Version None)
Quarter: 2011Q1

REPORT INFORMATION
  Report Type: 
  Country: None (occurrence: None)
  Receive Date: 20110210
  Receipt Date: 20110201
  Transmission Date: 20110831
  Serious: Yes (Hospitalization)
  Sender: FDA-Public Use
  Company Number: GER/UKI/11/0017091

PATIENT
  Age: 86 Year
  Sex: Male

DRUGS (8)
  1. SERETIDE [Concomitant]
  2. DOCUSATE [Concomitant]
  3. AMLODIPINE [Suspect]
     Indication: HYPERTENSION
     Dosage: 5 MG, 1 IN 1 D, ORAL
     Route: 048
     Dates: end: 20101221
  4. SCOPODERM TTS TRANSDERMAL PATCHES (HYOSCINE) [Suspect]
     Indication: SALIVARY HYPERSECRETION
     Dosage: 1 DOSAGE FROMS, 1 IN 1 72 HR, TRANSDERMAL
     Route: 062
     Dates: start: 20101214, end: 20101230
  5. TIOTROPIUM BROMIDE (TIOTROPIUM BROMIDE) [Suspect]
     Indication: CHRONIC OBSTRUCTIVE PULMONARY DISEASE
     Dosage: 18 MCG, 1 IN 1 D,
  6. ASPIRIN [Concomitant]
  7. BENDROFLUMETHIAZIDE (BENDROFLUMETHIAZIDE) [Suspect]
     Indication: HYPERTENSION
     Dosage: ORAL
     Route: 048
     Dates: end: 20101201
  8. LANSOPRAZOLE [Concomitant]

REACTIONS (6)
  - OFF LABEL USE [None]
  - GLOMERULAR FILTRATION RATE DECREASED [None]
  - PRODUCTIVE COUGH [None]
  - LOSS OF CONSCIOUSNESS [None]
  - DRY MOUTH [None]
  - FALL [None]
